FAERS Safety Report 5034891-0 (Version None)
Quarter: 2006Q2

REPORT INFORMATION
  Report Type: 
  Country: None (occurrence: None)
  Receive Date: 20060517
  Receipt Date: 20060301
  Transmission Date: 20061013
  Serious: Yes (Hospitalization)
  Sender: FDA-Public Use
  Company Number: PHEH2006US02804

PATIENT
  Age: 86 Year
  Sex: Female

DRUGS (2)
  1. GLEEVEC [Suspect]
     Indication: CHRONIC MYELOID LEUKAEMIA
     Dosage: 100 MG, QID, ORAL
     Route: 048
  2. AGRYLIN [Concomitant]

REACTIONS (3)
  - MALAISE [None]
  - NAUSEA [None]
  - RESPIRATORY TRACT INFECTION [None]
